FAERS Safety Report 4550709-4 (Version None)
Quarter: 2004Q4

REPORT INFORMATION
  Report Type: 
  Country: None (occurrence: None)
  Receive Date: 20041217
  Receipt Date: 20041025
  Transmission Date: 20050328
  Serious: No
  Sender: FDA-Public Use
  Company Number: 2004-BP-10859BP(0)

PATIENT
  Age: 10 Year
  Sex: Female

DRUGS (4)
  1. SPIRIVA [Suspect]
     Indication: ASTHMA
     Dosage: 18 MCG (18 MCG, 18 MCG ONCE DAILY) IH
     Route: 055
     Dates: start: 20040901, end: 20041020
  2. MAXAIR [Concomitant]
  3. XOPENEX [Concomitant]
  4. PULMICORT [Concomitant]

REACTIONS (4)
  - CHEST PAIN [None]
  - CONSTIPATION [None]
  - STOMACH DISCOMFORT [None]
  - THROAT IRRITATION [None]
